FAERS Safety Report 8766658 (Version 1)
Quarter: 2012Q4

REPORT INFORMATION
  Report Type: 
  Country: US (occurrence: US)
  Receive Date: 20120904
  Receipt Date: 20120904
  Transmission Date: 20130627
  Serious: No
  Sender: FDA-Public Use
  Company Number: US-BAYER-2012-088925

PATIENT
  Age: 53 Year
  Sex: Female

DRUGS (1)
  1. EOVIST [Suspect]
     Indication: NUCLEAR MAGNETIC RESONANCE IMAGING
     Dosage: 6 ml, ONCE
     Dates: start: 20120824, end: 20120824

REACTIONS (1)
  - Drug ineffective [None]
